FAERS Safety Report 15281014 (Version 2)
Quarter: 2018Q3

REPORT INFORMATION
  Report Type: Spontaneous
  Country: US (occurrence: US)
  Receive Date: 20180815
  Receipt Date: 20180918
  Transmission Date: 20181010
  Serious: No
  Sender: FDA-Public Use
  Company Number: US-BIOGEN-2018BI00620215

PATIENT
  Sex: Female

DRUGS (2)
  1. AVONEX [Suspect]
     Active Substance: INTERFERON BETA-1A
     Indication: MULTIPLE SCLEROSIS
     Route: 065
     Dates: start: 2010, end: 2012
  2. AVONEX [Suspect]
     Active Substance: INTERFERON BETA-1A
     Dates: start: 2012

REACTIONS (3)
  - Injection site reaction [Unknown]
  - Influenza like illness [Unknown]
  - Treatment failure [Unknown]

NARRATIVE: CASE EVENT DATE: 2010
